FAERS Safety Report 10504596 (Version 3)
Quarter: 2014Q4

REPORT INFORMATION
  Report Type: Spontaneous
  Country: GR (occurrence: GR)
  Receive Date: 20141008
  Receipt Date: 20141125
  Transmission Date: 20150528
  Serious: Yes (Death, Hospitalization)
  Sender: FDA-Public Use
  Company Number: GR-INCYTE CORPORATION-2014IN002851

PATIENT
  Sex: Male

DRUGS (12)
  1. KARVEA [Concomitant]
     Active Substance: IRBESARTAN
     Route: 065
  2. KARVEA [Concomitant]
     Active Substance: IRBESARTAN
     Route: 065
  3. KARVEA [Concomitant]
     Active Substance: IRBESARTAN
     Route: 065
  4. LASIX [Concomitant]
     Active Substance: FUROSEMIDE
     Route: 065
  5. JAKAFI [Suspect]
     Active Substance: RUXOLITINIB
     Indication: MYELOFIBROSIS
     Dosage: 5 MG, BID (2X2)
     Route: 065
     Dates: start: 20140224
  6. LOPRESSOR [Concomitant]
     Active Substance: METOPROLOL TARTRATE
     Route: 065
  7. LASIX [Concomitant]
     Active Substance: FUROSEMIDE
     Route: 065
  8. LOPRESSOR [Concomitant]
     Active Substance: METOPROLOL TARTRATE
     Indication: PRODUCT USED FOR UNKNOWN INDICATION
     Dosage: UNK UNK, UNK
  9. KARVEA [Concomitant]
     Active Substance: IRBESARTAN
     Indication: PRODUCT USED FOR UNKNOWN INDICATION
     Dosage: UNK UNK, UNK
  10. LASIX [Concomitant]
     Active Substance: FUROSEMIDE
     Route: 065
  11. LASIX [Concomitant]
     Active Substance: FUROSEMIDE
     Indication: PRODUCT USED FOR UNKNOWN INDICATION
     Dosage: UNK UNK, UNK
  12. LOPRESSOR [Concomitant]
     Active Substance: METOPROLOL TARTRATE
     Route: 065

REACTIONS (6)
  - Pyrexia [Fatal]
  - Acute kidney injury [Fatal]
  - Respiratory tract infection [Fatal]
  - C-reactive protein increased [Unknown]
  - Cardiac failure [Fatal]
  - Eye movement disorder [Unknown]

NARRATIVE: CASE EVENT DATE: 20140916
